FAERS Safety Report 18123595 (Version 2)
Quarter: 2021Q1

REPORT INFORMATION
  Report Type: Spontaneous
  Country: US (occurrence: US)
  Receive Date: 20200807
  Receipt Date: 20210203
  Transmission Date: 20210419
  Serious: No
  Sender: FDA-Public Use
  Company Number: US-GLAXOSMITHKLINE-US2020147990

PATIENT
  Sex: Female

DRUGS (1)
  1. NUCALA [Suspect]
     Active Substance: MEPOLIZUMAB
     Indication: PRODUCT USED FOR UNKNOWN INDICATION
     Dosage: UNK

REACTIONS (5)
  - Product dose omission issue [Unknown]
  - Exposure via skin contact [Recovered/Resolved]
  - Injection site bruising [Not Recovered/Not Resolved]
  - Accidental exposure to product [Unknown]
  - Product complaint [Unknown]
